FAERS Safety Report 10081892 (Version 2)
Quarter: 2014Q2

REPORT INFORMATION
  Report Type: Spontaneous
  Country: US (occurrence: US)
  Receive Date: 20140416
  Receipt Date: 20140505
  Transmission Date: 20141212
  Serious: Yes (Hospitalization)
  Sender: FDA-Public Use
  Company Number: US-GLAXOSMITHKLINE-A1068684A

PATIENT
  Age: 55 Year
  Sex: Male

DRUGS (4)
  1. ADVAIR [Suspect]
     Indication: CHRONIC OBSTRUCTIVE PULMONARY DISEASE
     Dosage: 1PUFF PER DAY
     Route: 055
     Dates: start: 20010606
  2. IPRATROPIUM BROMIDE [Concomitant]
  3. ALBUTEROL SULFATE [Concomitant]
  4. OXYGEN [Concomitant]

REACTIONS (8)
  - Dyspnoea [Not Recovered/Not Resolved]
  - Chronic obstructive pulmonary disease [Not Recovered/Not Resolved]
  - Drug ineffective [Not Recovered/Not Resolved]
  - Underdose [Not Recovered/Not Resolved]
  - Treatment noncompliance [Unknown]
  - Thrombosis [Unknown]
  - Decreased activity [Unknown]
  - Ill-defined disorder [Unknown]
